FAERS Safety Report 7003533-7 (Version None)
Quarter: 2010Q3

REPORT INFORMATION
  Report Type: 
  Country: None (occurrence: None)
  Receive Date: 20100920
  Receipt Date: 20100910
  Transmission Date: 20110219
  Serious: Yes (Other)
  Sender: FDA-Public Use
  Company Number: US-AMGEN-QUU437354

PATIENT
  Sex: Female

DRUGS (4)
  1. NPLATE [Suspect]
     Indication: IDIOPATHIC THROMBOCYTOPENIC PURPURA
     Dates: start: 20100812
  2. DECADRON [Concomitant]
  3. BACTRIM [Concomitant]
  4. FUROSEMIDE [Concomitant]

REACTIONS (2)
  - DEEP VEIN THROMBOSIS [None]
  - VASCULAR ANOMALY [None]
